FAERS Safety Report 13130003 (Version 1)
Quarter: 2017Q1

REPORT INFORMATION
  Report Type: Report from Study
  Country: ES (occurrence: ES)
  Receive Date: 20170119
  Receipt Date: 20170119
  Transmission Date: 20170428
  Serious: Yes (Hospitalization)
  Sender: FDA-Public Use
  Company Number: ES-AUROBINDO-AUR-APL-2017-00382

PATIENT
  Age: 93 Year
  Sex: Female

DRUGS (5)
  1. CITALOPRAM [Suspect]
     Active Substance: CITALOPRAM HYDROBROMIDE
     Indication: DEPRESSION
     Dosage: 30 MG, ONCE A DAY
     Route: 048
     Dates: start: 20121108, end: 20151008
  2. ALPRAZOLAM ALTER [Suspect]
     Active Substance: ALPRAZOLAM
     Indication: DEPRESSION
     Dosage: 208.333 ?G, 3 TIMES A DAY
     Route: 048
     Dates: start: 20150414, end: 20151008
  3. DEPRAX                             /00447702/ [Suspect]
     Active Substance: TRAZODONE HYDROCHLORIDE
     Indication: DEPRESSION
     Dosage: 125 MG, TWO TIMES A DAY
     Route: 048
     Dates: start: 20141107, end: 20151008
  4. FENTANYL TRANSDERMAL SYSTEM [Suspect]
     Active Substance: FENTANYL
     Indication: OSTEOARTHRITIS
     Dosage: 50 ?G, EVERY HOUR
     Route: 062
     Dates: start: 20150923, end: 20151008
  5. LYRICA [Suspect]
     Active Substance: PREGABALIN
     Indication: OSTEOARTHRITIS
     Dosage: 41.667 MG, 3 TIMES A DAY
     Route: 048
     Dates: start: 20141107, end: 20151008

REACTIONS (4)
  - Syncope [Recovered/Resolved]
  - Altered state of consciousness [Unknown]
  - Euphoric mood [Unknown]
  - Pallor [Unknown]

NARRATIVE: CASE EVENT DATE: 20151008
